FAERS Safety Report 4924093-8 (Version None)
Quarter: 2006Q1

REPORT INFORMATION
  Report Type: 
  Country: None (occurrence: None)
  Receive Date: 20060227
  Receipt Date: 20051109
  Transmission Date: 20060701
  Serious: No
  Sender: FDA-Public Use
  Company Number: US-GLAXOSMITHKLINE-A0582004A

PATIENT
  Age: 18 Year
  Sex: Female
  Weight: 72.7 kg

DRUGS (2)
  1. WELLBUTRIN XL [Suspect]
     Indication: MAJOR DEPRESSION
     Route: 048
     Dates: start: 20051011, end: 20051015
  2. ADDERALL XR 10 [Concomitant]
     Dosage: 40MG PER DAY

REACTIONS (1)
  - PHARYNGEAL ULCERATION [None]
